FAERS Safety Report 9254338 (Version 1)
Quarter: 2013Q2

REPORT INFORMATION
  Report Type: Spontaneous
  Country: BE (occurrence: None)
  Receive Date: 20130419
  Receipt Date: 20130419
  Transmission Date: 20140414
  Serious: Yes (Hospitalization)
  Sender: FDA-Public Use
  Company Number: SYM-2013-02675

PATIENT
  Age: 82 Year
  Sex: Male

DRUGS (11)
  1. FLAGYL [Suspect]
     Indication: CLOSTRIDIUM DIFFICILE COLITIS
     Route: 048
     Dates: start: 20130306, end: 20130316
  2. SINTROM [Suspect]
     Indication: ATRIAL FIBRILLATION
     Route: 048
     Dates: start: 20130305, end: 20130307
  3. DEPAKINE CHRONO (ERGENYL CHRONO) (VALPROIC ACID, VALPROATE SODIUM) [Concomitant]
  4. HALDOL (HALOPERIDOL DECANOATE) (HALOPERIDOL DECANOATE) [Concomitant]
  5. LANOXIN (DIGOXIN) (DIGOXIN) [Concomitant]
  6. LASIX (FUROSEMIDE) (FUROSEMIDE) [Concomitant]
  7. TRAZOLAN (TRAZODONE HYDROCHLORIDE) (TRAZODONE HYDROCHLORIDE) [Concomitant]
  8. ZESTRIL (LISINOPRIL) (LISINOPRIL) [Concomitant]
  9. ZYPREXA (OLANZAPINE) [Concomitant]
  10. DUOVENT (DUOVENT) (FENOTEROL HYDROBROMIDE, IPRATROPIUM BROMIDE) [Concomitant]
  11. PULMICORT (BUDESONIDE) (BUDESONIDE) [Concomitant]

REACTIONS (3)
  - Impaired healing [None]
  - Penile haemorrhage [None]
  - Genital lesion [None]
